FAERS Safety Report 5484135-0 (Version None)
Quarter: 2007Q4

REPORT INFORMATION
  Report Type: 
  Country: None (occurrence: None)
  Receive Date: 20071012
  Receipt Date: 20071009
  Transmission Date: 20080405
  Serious: Yes (Other)
  Sender: FDA-Public Use
  Company Number: MX-BRISTOL-MYERS SQUIBB COMPANY-13934583

PATIENT
  Age: 30 Year
  Sex: Male
  Weight: 70 kg

DRUGS (2)
  1. EFAVIRENZ [Suspect]
     Indication: HIV TEST POSITIVE
     Route: 048
     Dates: start: 20070426, end: 20070628
  2. COMBIVIR [Suspect]
     Indication: HIV TEST POSITIVE
     Route: 048
     Dates: start: 20070426, end: 20070628

REACTIONS (3)
  - BLOOD CREATINE PHOSPHOKINASE INCREASED [None]
  - BLOOD LACTATE DEHYDROGENASE INCREASED [None]
  - HEPATIC ENZYME INCREASED [None]
